FAERS Safety Report 20770411 (Version 1)
Quarter: 2022Q2

REPORT INFORMATION
  Report Type: Spontaneous
  Country: CA (occurrence: CA)
  Receive Date: 20220429
  Receipt Date: 20220429
  Transmission Date: 20220721
  Serious: Yes (Hospitalization)
  Sender: FDA-Public Use
  Company Number: CA-009507513-2204CAN008542

PATIENT
  Age: 45 Year
  Sex: Male

DRUGS (4)
  1. TEMODAL [Suspect]
     Active Substance: TEMOZOLOMIDE
     Indication: Astrocytoma
     Dosage: UNK
  2. LEVETIRACETAM [Concomitant]
     Active Substance: LEVETIRACETAM
     Route: 065
  3. DAPSONE [Concomitant]
     Active Substance: DAPSONE
  4. COVID-19 VACCINE [Concomitant]

REACTIONS (5)
  - Anxiety [Unknown]
  - Neutropenia [Unknown]
  - Platelet count decreased [Unknown]
  - Platelet transfusion [Unknown]
  - Thrombocytopenia [Unknown]
